FAERS Safety Report 21958688 (Version 1)
Quarter: 2023Q1

REPORT INFORMATION
  Report Type: Spontaneous
  Country: US (occurrence: None)
  Receive Date: 20230203
  Receipt Date: 20230203
  Transmission Date: 20230417
  Serious: Yes (Hospitalization)
  Sender: FDA-Public Use
  Company Number: None

PATIENT
  Age: 57 Year
  Sex: Female
  Weight: 63.5 kg

DRUGS (10)
  1. FULVESTRANT [Suspect]
     Active Substance: FULVESTRANT
     Indication: Breast cancer female
     Dosage: FREQUENCY : MONTHLY;?
     Route: 030
  2. KISQALI [Suspect]
     Active Substance: RIBOCICLIB
     Indication: Breast cancer female
     Dosage: OTHER QUANTITY : 400-600MG;?FREQUENCY : EVERY OTHER DAY;?
     Route: 048
  3. BENADRYL [Concomitant]
     Active Substance: DIPHENHYDRAMINE HYDROCHLORIDE
  4. GABAPENTIN [Concomitant]
     Active Substance: GABAPENTIN
  5. GLIPIZIDE [Concomitant]
     Active Substance: GLIPIZIDE
  6. METFORMIN [Concomitant]
     Active Substance: METFORMIN HYDROCHLORIDE
  7. OXYCODONE [Concomitant]
     Active Substance: OXYCODONE
  8. PLAVIX [Concomitant]
     Active Substance: CLOPIDOGREL BISULFATE
  9. VITAMIN D2 [Concomitant]
     Active Substance: ERGOCALCIFEROL
  10. XARELTO [Concomitant]
     Active Substance: RIVAROXABAN

REACTIONS (1)
  - Cerebrovascular accident [None]
